FAERS Safety Report 4949766-2 (Version None)
Quarter: 2006Q1

REPORT INFORMATION
  Report Type: 
  Country: None (occurrence: None)
  Receive Date: 20060321
  Receipt Date: 20060223
  Transmission Date: 20060701
  Serious: Yes (Death, Hospitalization, Other)
  Sender: FDA-Public Use
  Company Number: US-MERCK-0602USA05433

PATIENT
  Age: 72 Year
  Sex: Female
  Weight: 136 kg

DRUGS (12)
  1. VIOXX [Suspect]
     Indication: ARTHRITIS
     Route: 048
     Dates: start: 20021002, end: 20040317
  2. MEGESTROL ACETATE [Concomitant]
     Route: 065
  3. LIPITOR [Concomitant]
     Route: 065
  4. DARVOCET [Concomitant]
     Route: 065
  5. COVERA-HS [Concomitant]
     Route: 065
  6. LANOXIN [Concomitant]
     Route: 065
  7. GLUCOVANCE [Concomitant]
     Route: 065
  8. ALLOPURINOL [Concomitant]
     Route: 065
  9. HUMULIN 70/30 [Concomitant]
     Route: 065
  10. MEGACE [Concomitant]
     Route: 065
  11. ACETAMINOPHEN AND PROPOXYPHENE NAPSYLATE [Concomitant]
     Route: 065
  12. TARKA [Concomitant]
     Route: 065

REACTIONS (4)
  - DEATH [None]
  - FALL [None]
  - ISCHAEMIC STROKE [None]
  - MYOCARDIAL INFARCTION [None]
